FAERS Safety Report 13027225 (Version 1)
Quarter: 2016Q4

REPORT INFORMATION
  Report Type: Spontaneous
  Country: KR (occurrence: KR)
  Receive Date: 20161214
  Receipt Date: 20161214
  Transmission Date: 20170207
  Serious: Yes (Death, Other)
  Sender: FDA-Public Use
  Company Number: KR-BRISTOL-MYERS SQUIBB COMPANY-BMS-2016-104521

PATIENT
  Age: 36 Year
  Sex: Female

DRUGS (3)
  1. WARFARIN SODIUM. [Suspect]
     Active Substance: WARFARIN SODIUM
     Indication: ATRIAL THROMBOSIS
     Dosage: UNK
     Route: 065
  2. ENOXAPARIN [Suspect]
     Active Substance: ENOXAPARIN
     Indication: ATRIAL THROMBOSIS
     Dosage: 5000 IU, BID
     Route: 058
  3. ESOMEPRAZOLE [Suspect]
     Active Substance: ESOMEPRAZOLE
     Indication: ATRIAL THROMBOSIS
     Dosage: UNK
     Route: 065

REACTIONS (5)
  - Pulmonary embolism [Fatal]
  - Therapeutic aspiration [Unknown]
  - Stent placement [Unknown]
  - Thrombocytopenia [Unknown]
  - Thrombolysis [Unknown]
